FAERS Safety Report 7911562-1 (Version None)
Quarter: 2011Q4

REPORT INFORMATION
  Report Type: 
  Country: None (occurrence: None)
  Receive Date: 20111114
  Receipt Date: 20111108
  Transmission Date: 20120403
  Serious: Yes (Hospitalization)
  Sender: FDA-Public Use
  Company Number: US-B.I. PHARMACEUTICALS,INC./RIDGEFIELD-2011-BP-22915BP

PATIENT
  Age: 83 Year
  Sex: Female
  Weight: 57.61 kg

DRUGS (10)
  1. LASIX [Concomitant]
     Dosage: 60 MG
  2. COREG [Concomitant]
     Dosage: 25 MG
  3. ALDACTONE [Concomitant]
     Dosage: 25 MG
  4. FEROSOL [Concomitant]
  5. LANOXIN [Concomitant]
     Dosage: 0.125 MG
  6. ZOCOR [Concomitant]
     Dosage: 20 MG
  7. PRADAXA [Suspect]
     Indication: ANTICOAGULANT THERAPY
     Dosage: 300 MG
     Dates: start: 20101206, end: 20101228
  8. METFORMIN [Concomitant]
     Dosage: 500 MG
  9. PRADAXA [Suspect]
     Indication: ATRIAL FIBRILLATION
  10. LISINOPRIL [Concomitant]
     Dosage: 10 MG

REACTIONS (6)
  - HAEMORRHAGE [None]
  - ANAEMIA [None]
  - MELAENA [None]
  - RENAL DISORDER [None]
  - GASTROINTESTINAL HAEMORRHAGE [None]
  - HAEMATOCHEZIA [None]
